FAERS Safety Report 10644489 (Version 4)
Quarter: 2015Q2

REPORT INFORMATION
  Report Type: Spontaneous
  Country: DK (occurrence: DK)
  Receive Date: 20141210
  Receipt Date: 20150428
  Transmission Date: 20150821
  Serious: Yes (Hospitalization, Congenital Anomaly, Other)
  Sender: FDA-Public Use
  Company Number: DK-GLAXOSMITHKLINE-B0915786B

PATIENT
  Age: 0 Year
  Sex: Male
  Weight: 3.4 kg

DRUGS (5)
  1. LINDYNETTE [Suspect]
     Active Substance: ETHINYL ESTRADIOL\GESTODENE
     Indication: CONTRACEPTION
     Dosage: DOSIS: 1 TABLET DAGLIGT.STYRKE: 75 + 30 MIKROGRAM.
     Route: 064
     Dates: end: 20130430
  2. LAMICTAL [Suspect]
     Active Substance: LAMOTRIGINE
     Indication: DEPRESSION
     Dosage: DOSIS: 200+300 MG.
     Route: 064
     Dates: start: 200407
  3. SEROQUEL [Suspect]
     Active Substance: QUETIAPINE FUMARATE
     Indication: DEPRESSION
     Dosage: DOSIS: 50 MG, 1 GANG DAGLIGT.STYRKE: 25 MG.
     Route: 064
     Dates: start: 20130101, end: 20130502
  4. ELTROXIN [Suspect]
     Active Substance: LEVOTHYROXINE
     Indication: HYPOTHYROIDIC GOITRE
     Dosage: DOSIS: 50 MIKGRAM, 1 GANG DAGLIGT.STYRKE: 50 MIKROGRAM.
     Route: 064
     Dates: start: 200610
  5. NORITREN [Suspect]
     Active Substance: NORTRIPTYLINE HYDROCHLORIDE
     Indication: DEPRESSION
     Dosage: DOSIS: 50 MG, 3 GANGE DAGLIGT.STYRKE: 50 MG.
     Route: 064
     Dates: start: 20040701

REACTIONS (4)
  - Epispadias [Not Recovered/Not Resolved]
  - Anomaly of external ear congenital [Not Recovered/Not Resolved]
  - Hemivertebra [Not Recovered/Not Resolved]
  - Exposure during pregnancy [Recovered/Resolved]

NARRATIVE: CASE EVENT DATE: 20130502
